FAERS Safety Report 10303382 (Version 2)
Quarter: 2014Q3

REPORT INFORMATION
  Report Type: Report from Study
  Country: GB (occurrence: GB)
  Receive Date: 20140714
  Receipt Date: 20140827
  Transmission Date: 20150326
  Serious: Yes (Other)
  Sender: FDA-Public Use
  Company Number: GB-ROCHE-1434379

PATIENT
  Sex: Female

DRUGS (1)
  1. HERCEPTIN [Suspect]
     Active Substance: TRASTUZUMAB
     Indication: NEOPLASM MALIGNANT
     Route: 065

REACTIONS (5)
  - Multiple gated acquisition scan abnormal [Unknown]
  - Palpitations [Unknown]
  - Diarrhoea [Unknown]
  - Nail disorder [Unknown]
  - Fatigue [Unknown]
